FAERS Safety Report 19811732 (Version 2)
Quarter: 2022Q1

REPORT INFORMATION
  Report Type: Spontaneous
  Country: US (occurrence: US)
  Receive Date: 20210909
  Receipt Date: 20220118
  Transmission Date: 20220423
  Serious: Yes (Other)
  Sender: FDA-Public Use
  Company Number: US-PFIZER INC-202101142711

PATIENT
  Age: 62 Year
  Sex: Female
  Weight: 63.5 kg

DRUGS (1)
  1. CHANTIX [Suspect]
     Active Substance: VARENICLINE TARTRATE
     Indication: Smoking cessation therapy
     Dosage: UNK
     Dates: start: 202011, end: 202102

REACTIONS (12)
  - Deafness [Unknown]
  - Malaise [Unknown]
  - Palpitations [Unknown]
  - Dizziness [Recovered/Resolved]
  - Vertigo [Unknown]
  - Eye movement disorder [Unknown]
  - Gastric disorder [Unknown]
  - Constipation [Recovering/Resolving]
  - Feeling abnormal [Recovering/Resolving]
  - Drug ineffective [Unknown]
  - Retching [Unknown]
  - Dry mouth [Recovering/Resolving]
